FAERS Safety Report 23188617 (Version 5)
Quarter: 2024Q1

REPORT INFORMATION
  Report Type: Spontaneous
  Country: US (occurrence: US)
  Receive Date: 20231115
  Receipt Date: 20240109
  Transmission Date: 20240410
  Serious: No
  Sender: FDA-Public Use
  Company Number: US-PFIZER INC-202300358344

PATIENT
  Age: 72 Year
  Sex: Female
  Weight: 52.608 kg

DRUGS (3)
  1. PAXLOVID [Suspect]
     Active Substance: NIRMATRELVIR\RITONAVIR
     Indication: COVID-19 treatment
     Dosage: [NIRMATRELVIR 300 MG]/[RITONAVIR 100 MG]; 2X/DAY
     Dates: start: 20231025, end: 20231030
  2. CEQUA [Concomitant]
     Active Substance: CYCLOSPORINE
     Indication: Dry eye
     Dosage: ONE DROP EACH EYE, 2X/DAY
     Dates: start: 202305
  3. TYRVAYA [Concomitant]
     Active Substance: VARENICLINE TARTRATE
     Indication: Dry eye
     Dosage: ONE IN EACH NOSTRIL
     Dates: start: 202211

REACTIONS (2)
  - COVID-19 [Recovered/Resolved]
  - Disease recurrence [Recovered/Resolved]

NARRATIVE: CASE EVENT DATE: 20231106
